FAERS Safety Report 7861060-9 (Version None)
Quarter: 2011Q4

REPORT INFORMATION
  Report Type: 
  Country: None (occurrence: None)
  Receive Date: 20111027
  Receipt Date: 20111019
  Transmission Date: 20120403
  Serious: Yes (Hospitalization)
  Sender: FDA-Public Use
  Company Number: FR-GLAXOSMITHKLINE-B0756900A

PATIENT
  Sex: Male

DRUGS (1)
  1. ARIXTRA [Suspect]
     Indication: THROMBOSIS
     Dosage: 7.5MG PER DAY
     Route: 058
     Dates: start: 20110511, end: 20110617

REACTIONS (4)
  - PYREXIA [None]
  - RASH MACULO-PAPULAR [None]
  - INCORRECT DRUG ADMINISTRATION DURATION [None]
  - TOXIC SKIN ERUPTION [None]
